FAERS Safety Report 6172860-8 (Version None)
Quarter: 2009Q2

REPORT INFORMATION
  Report Type: 
  Country: None (occurrence: None)
  Receive Date: 20090430
  Receipt Date: 20090424
  Transmission Date: 20091009
  Serious: Yes (Hospitalization, Other)
  Sender: FDA-Public Use
  Company Number: DK-ROCHE-626611

PATIENT
  Sex: Male

DRUGS (21)
  1. TORSEMIDE [Suspect]
     Indication: DRUG USE FOR UNKNOWN INDICATION
     Route: 065
  2. SAXAGLIPTIN [Suspect]
     Indication: TYPE 2 DIABETES MELLITUS
     Route: 048
     Dates: start: 20070730
  3. SAXAGLIPTIN [Suspect]
     Route: 048
     Dates: end: 20090109
  4. SAXAGLIPTIN [Suspect]
     Route: 048
     Dates: end: 20090214
  5. SAXAGLIPTIN [Suspect]
     Route: 048
  6. LISINOPRIL [Suspect]
     Indication: DRUG USE FOR UNKNOWN INDICATION
     Route: 065
     Dates: start: 20090110
  7. FOSINORM [Suspect]
     Indication: DRUG USE FOR UNKNOWN INDICATION
     Route: 065
  8. NEBILET [Suspect]
     Indication: DRUG USE FOR UNKNOWN INDICATION
     Route: 065
  9. DOXAZOSIN MESYLATE [Suspect]
     Indication: DRUG USE FOR UNKNOWN INDICATION
     Route: 065
  10. CARMEN [Suspect]
     Indication: DRUG USE FOR UNKNOWN INDICATION
     Route: 065
  11. ASPIRIN [Concomitant]
     Dates: start: 20080619
  12. INSUMAN COMB 25 [Concomitant]
     Dates: start: 20080827, end: 20090103
  13. ALLOPURINOL [Concomitant]
     Dates: start: 20081218, end: 20081230
  14. AMOXICILLIN AND CLAVULANATE POTASSIUM [Concomitant]
     Dates: start: 20081119, end: 20081129
  15. XIPAMIDE [Concomitant]
     Dates: start: 20080619, end: 20090109
  16. CEFUROXIME [Concomitant]
     Dates: start: 20090224
  17. BISOPROLOL FUMARATE [Concomitant]
     Dates: start: 20090110
  18. TORASEMIDE [Concomitant]
     Dates: start: 20080723
  19. METOPROLOL TARTRATE [Concomitant]
     Dates: start: 20080619, end: 20090109
  20. TRAMADOL HCL [Concomitant]
     Dates: start: 20081216, end: 20081218
  21. NOVAMINSULFON [Concomitant]
     Dates: start: 20081218, end: 20081219

REACTIONS (5)
  - ABDOMINAL PAIN UPPER [None]
  - DIZZINESS [None]
  - LOSS OF CONSCIOUSNESS [None]
  - ORTHOSTATIC HYPOTENSION [None]
  - PNEUMONIA [None]
